FAERS Safety Report 25535224 (Version 1)
Quarter: 2025Q3

REPORT INFORMATION
  Report Type: Spontaneous
  Country: MA (occurrence: MA)
  Receive Date: 20250709
  Receipt Date: 20250709
  Transmission Date: 20251020
  Serious: Yes (Death, Hospitalization)
  Sender: BIOMARIN
  Company Number: MA-SA-2025SA191942

PATIENT
  Age: 29 Year
  Sex: Female

DRUGS (1)
  1. LARONIDASE [Suspect]
     Active Substance: LARONIDASE
     Indication: Mucopolysaccharidosis I
     Dosage: UNK, QW
     Route: 041
     Dates: start: 202303, end: 20250627

REACTIONS (1)
  - Influenza like illness [Fatal]

NARRATIVE: CASE EVENT DATE: 20250702
